FAERS Safety Report 12409158 (Version 17)
Quarter: 2017Q2

REPORT INFORMATION
  Report Type: Spontaneous
  Country: US (occurrence: US)
  Receive Date: 20160526
  Receipt Date: 20170517
  Transmission Date: 20170830
  Serious: Yes (Hospitalization)
  Sender: FDA-Public Use
  Company Number: US-ACTELION-A-US2016-136643

PATIENT
  Age: 67 Year
  Sex: Male
  Weight: 72.11 kg

DRUGS (6)
  1. VELETRI [Suspect]
     Active Substance: EPOPROSTENOL
     Dosage: UNK
     Route: 042
  2. TRACLEER [Suspect]
     Active Substance: BOSENTAN
     Indication: PULMONARY ARTERIAL HYPERTENSION
     Dosage: 125 MG, BID
     Route: 048
     Dates: start: 20131031
  3. REVATIO [Concomitant]
     Active Substance: SILDENAFIL CITRATE
  4. DILTIAZEM. [Concomitant]
     Active Substance: DILTIAZEM
  5. VELETRI [Suspect]
     Active Substance: EPOPROSTENOL
     Indication: PULMONARY ARTERIAL HYPERTENSION
     Dosage: 56 NG/KG, PER MIN
     Route: 042
     Dates: start: 20160413
  6. COUMADIN [Concomitant]
     Active Substance: WARFARIN SODIUM

REACTIONS (23)
  - Complication associated with device [Unknown]
  - Pain in extremity [Not Recovered/Not Resolved]
  - Weight decreased [Unknown]
  - Thrombosis in device [Unknown]
  - Urinary bladder haemorrhage [Unknown]
  - Urinary retention [Unknown]
  - Catheter site pain [Unknown]
  - Catheter site discharge [Unknown]
  - Product deposit [Unknown]
  - Catheter placement [Unknown]
  - Oedema peripheral [Unknown]
  - Pleural effusion [Unknown]
  - Respiration abnormal [Unknown]
  - Pain in jaw [Not Recovered/Not Resolved]
  - Post procedural haemorrhage [Unknown]
  - Bladder polypectomy [Unknown]
  - Oedema [Unknown]
  - Catheter site inflammation [Unknown]
  - Device issue [Unknown]
  - Gastric haemorrhage [Unknown]
  - Bladder operation [Unknown]
  - Catheter site erythema [Unknown]
  - Epistaxis [Unknown]

NARRATIVE: CASE EVENT DATE: 20161213
